FAERS Safety Report 16033450 (Version 1)
Quarter: 2019Q1

REPORT INFORMATION
  Report Type: Spontaneous
  Country: US (occurrence: US)
  Receive Date: 20190305
  Receipt Date: 20190305
  Transmission Date: 20190418
  Serious: No
  Sender: FDA-Public Use
  Company Number: US-PRINSTON PHARMACEUTICAL INC.-2019PRN00092

PATIENT
  Sex: Female

DRUGS (3)
  1. DULOXETINE. [Suspect]
     Active Substance: DULOXETINE
     Dosage: 120 MG, 1X/DAY
     Route: 048
     Dates: start: 201901
  2. DULOXETINE. [Suspect]
     Active Substance: DULOXETINE
     Indication: NEURALGIA
     Dosage: 120 MG, 1X/DAY
     Route: 048
     Dates: start: 201804, end: 20190108
  3. DULOXETINE. [Suspect]
     Active Substance: DULOXETINE
     Dosage: 120 MG, 1X/DAY
     Route: 048
     Dates: start: 20190109, end: 201901

REACTIONS (1)
  - Drug effect decreased [Recovering/Resolving]

NARRATIVE: CASE EVENT DATE: 20190109
